FAERS Safety Report 5475924-7 (Version None)
Quarter: 2007Q4

REPORT INFORMATION
  Report Type: 
  Country: None (occurrence: None)
  Receive Date: 20071003
  Receipt Date: 20070921
  Transmission Date: 20080405
  Serious: Yes (Hospitalization)
  Sender: FDA-Public Use
  Company Number: DK-ELI_LILLY_AND_COMPANY-DK200709004435

PATIENT
  Age: 71 Year
  Sex: Male

DRUGS (1)
  1. TERIPARATIDE [Suspect]
     Dosage: UNK, UNKNOWN
     Route: 065
     Dates: start: 20070601

REACTIONS (1)
  - ATRIAL FIBRILLATION [None]
